FAERS Safety Report 21515985 (Version 1)
Quarter: 2022Q4

REPORT INFORMATION
  Report Type: Spontaneous
  Country: CN (occurrence: CN)
  Receive Date: 20221027
  Receipt Date: 20221027
  Transmission Date: 20230112
  Serious: Yes (Life-Threatening)
  Sender: FDA-Public Use
  Company Number: CN-NAPPMUNDI-GBR-2022-0102396

PATIENT
  Age: 82 Year
  Sex: Male
  Weight: 49 kg

DRUGS (3)
  1. OXYCONTIN [Suspect]
     Active Substance: OXYCODONE HYDROCHLORIDE
     Indication: Cancer pain
     Dosage: 20 MILLIGRAM, BID (TWO TIMES A DAY)
     Route: 048
     Dates: start: 20221003, end: 20221004
  2. OXYCONTIN [Suspect]
     Active Substance: OXYCODONE HYDROCHLORIDE
     Dosage: 40 MILLIGRAM, BID (TWO TIMES A DAY)
     Route: 048
     Dates: start: 20221003, end: 20221004
  3. OLANZAPINE [Suspect]
     Active Substance: OLANZAPINE
     Indication: Sleep disorder
     Dosage: 2.5 MILLIGRAM, DAILY
     Route: 048
     Dates: start: 20221003, end: 20221004

REACTIONS (3)
  - Miosis [Recovering/Resolving]
  - Somnolence [Recovering/Resolving]
  - Respiratory depression [Recovering/Resolving]

NARRATIVE: CASE EVENT DATE: 20221004
